FAERS Safety Report 26044264 (Version 1)
Quarter: 2025Q4

REPORT INFORMATION
  Report Type: Spontaneous
  Country: US (occurrence: US)
  Receive Date: 20251114
  Receipt Date: 20251114
  Transmission Date: 20260118
  Serious: No
  Sender: VIIV
  Company Number: US-VIIV HEALTHCARE-US2025144533

PATIENT
  Sex: Male

DRUGS (1)
  1. DOLUTEGRAVIR [Suspect]
     Active Substance: DOLUTEGRAVIR
     Indication: HIV infection
     Dosage: 100 MG, QD

REACTIONS (2)
  - Inappropriate schedule of product administration [Unknown]
  - Product use in unapproved therapeutic environment [Unknown]
